FAERS Safety Report 7568538-6 (Version None)
Quarter: 2011Q2

REPORT INFORMATION
  Report Type: 
  Country: None (occurrence: None)
  Receive Date: 20110623
  Receipt Date: 20110621
  Transmission Date: 20111010
  Serious: Yes (Hospitalization, Other)
  Sender: FDA-Public Use
  Company Number: US-PFIZER INC-2011137708

PATIENT
  Sex: Female
  Weight: 69 kg

DRUGS (11)
  1. LIPITOR [Suspect]
     Indication: LOW DENSITY LIPOPROTEIN INCREASED
     Dosage: 10 MG, DAILY
     Route: 048
     Dates: start: 20070201, end: 20110201
  2. REMERON [Concomitant]
     Indication: DEPRESSION
     Dosage: 45 MG, DAILY
  3. KLONOPIN [Concomitant]
     Indication: DEPRESSION
     Dosage: 5 MG, 2X/DAY
  4. KLONOPIN [Concomitant]
     Indication: ANXIETY
  5. LEVOTHYROXINE SODIUM [Concomitant]
     Indication: THYROID DISORDER
     Dosage: DAILY
  6. OMEPRAZOLE [Concomitant]
     Indication: GASTROOESOPHAGEAL REFLUX DISEASE
     Dosage: 20 MG, DAILY
  7. LEXAPRO [Concomitant]
     Indication: ANXIETY
  8. DOXYCYCLINE [Concomitant]
     Indication: PERIODONTAL DISEASE
     Dosage: UNK, 2X/DAY
  9. LEXAPRO [Concomitant]
     Indication: DEPRESSION
     Dosage: 20 MG, DAILY
  10. REMERON [Concomitant]
     Indication: ANXIETY
  11. LIPITOR [Suspect]
     Indication: BLOOD CHOLESTEROL INCREASED

REACTIONS (4)
  - CEREBRAL HAEMANGIOMA [None]
  - HYPERTHYROIDISM [None]
  - HYPOTHYROIDISM [None]
  - WEIGHT INCREASED [None]
